FAERS Safety Report 4732549-6 (Version None)
Quarter: 2005Q3

REPORT INFORMATION
  Report Type: 
  Country: None (occurrence: None)
  Receive Date: 20050801
  Receipt Date: 20050720
  Transmission Date: 20060218
  Serious: Yes (Other)
  Sender: FDA-Public Use
  Company Number: S05-USA-03547-01

PATIENT
  Age: 54 Year
  Sex: Male

DRUGS (3)
  1. LEXAPRO [Suspect]
     Indication: DEPRESSION
  2. CHOLESTEROL MEDICATIONS (NOS) [Concomitant]
  3. ANTIHYPERTENSIVE MEDICATIONS (NOS) [Concomitant]

REACTIONS (2)
  - ALCOHOL USE [None]
  - MURDER [None]
